FAERS Safety Report 17707061 (Version 2)
Quarter: 2020Q3

REPORT INFORMATION
  Report Type: Report from Study
  Country: CR (occurrence: CR)
  Receive Date: 20200424
  Receipt Date: 20200816
  Transmission Date: 20201102
  Serious: Yes (Life-Threatening, Other)
  Sender: FDA-Public Use
  Company Number: PHHY2015CR080111

PATIENT
  Age: 32 Year
  Sex: Female

DRUGS (5)
  1. EPIVAL [Concomitant]
     Active Substance: DIVALPROEX SODIUM
     Indication: PRODUCT USED FOR UNKNOWN INDICATION
     Dosage: UNK
     Route: 065
  2. GILENYA [Suspect]
     Active Substance: FINGOLIMOD HYDROCHLORIDE
     Dosage: UNK
     Route: 065
     Dates: start: 20150825, end: 20151222
  3. VENLAFAXINE [Concomitant]
     Active Substance: VENLAFAXINE HYDROCHLORIDE
     Indication: PRODUCT USED FOR UNKNOWN INDICATION
     Dosage: UNK
     Route: 065
  4. GILENYA [Suspect]
     Active Substance: FINGOLIMOD HYDROCHLORIDE
     Indication: RELAPSING-REMITTING MULTIPLE SCLEROSIS
     Dosage: UNK UNK, QD
     Route: 048
     Dates: start: 20150629
  5. GILENYA [Suspect]
     Active Substance: FINGOLIMOD HYDROCHLORIDE
     Dosage: 0.5 MG, QD
     Route: 048
     Dates: start: 20160929

REACTIONS (33)
  - Gait disturbance [Unknown]
  - Thirst [Unknown]
  - Hypoaesthesia [Unknown]
  - Product dose omission issue [Unknown]
  - Hypoaesthesia oral [Unknown]
  - Decreased appetite [Unknown]
  - Oropharyngeal pain [Unknown]
  - Pallor [Unknown]
  - Dizziness [Unknown]
  - Asthenia [Unknown]
  - Vision blurred [Unknown]
  - Illness [Unknown]
  - Ageusia [Unknown]
  - Contusion [Unknown]
  - Fall [Unknown]
  - Amnesia [Unknown]
  - Influenza [Unknown]
  - Multiple sclerosis relapse [Unknown]
  - Pyrexia [Unknown]
  - Visual impairment [Not Recovered/Not Resolved]
  - Fear of disease [Unknown]
  - Chest discomfort [Unknown]
  - Anxiety [Unknown]
  - Eye pain [Unknown]
  - Fatigue [Unknown]
  - Migraine [Unknown]
  - Eye disorder [Unknown]
  - Multiple sclerosis [Unknown]
  - Mobility decreased [Unknown]
  - Bone pain [Unknown]
  - Dyspnoea [Unknown]
  - Dry throat [Unknown]
  - Headache [Unknown]

NARRATIVE: CASE EVENT DATE: 2016
